FAERS Safety Report 8280139 (Version 2)
Quarter: 2017Q1

REPORT INFORMATION
  Report Type: Spontaneous
  Country: FR (occurrence: FR)
  Receive Date: 20111208
  Receipt Date: 20170306
  Transmission Date: 20170429
  Serious: Yes (Other)
  Sender: FDA-Public Use
  Company Number: FR-BAYER-2011-116120

PATIENT
  Age: 59 Year
  Sex: Male

DRUGS (4)
  1. IZILOX [Suspect]
     Active Substance: MOXIFLOXACIN HYDROCHLORIDE
     Indication: ACUTE SINUSITIS
  2. MOPRAL [Concomitant]
     Active Substance: OMEPRAZOLE SODIUM
     Dosage: UNK
     Dates: start: 20110712, end: 20110719
  3. IZILOX [Suspect]
     Active Substance: MOXIFLOXACIN HYDROCHLORIDE
     Indication: DEVICE RELATED INFECTION
     Dosage: 400 MG, BID
     Route: 048
     Dates: start: 20110712, end: 20110719
  4. CORTANCYL [Concomitant]
     Active Substance: PREDNISONE
     Indication: DEVICE RELATED INFECTION
     Dosage: UNK
     Route: 048
     Dates: start: 20110712, end: 20110717

REACTIONS (6)
  - Pupils unequal [Recovered/Resolved with Sequelae]
  - Iris atrophy [Recovered/Resolved with Sequelae]
  - Iris transillumination defect [Recovered/Resolved with Sequelae]
  - Uveitis [Recovered/Resolved with Sequelae]
  - Ocular hypertension [Recovered/Resolved]
  - Eye pain [Recovered/Resolved with Sequelae]

NARRATIVE: CASE EVENT DATE: 20110723
